FAERS Safety Report 4330073-6 (Version None)
Quarter: 2004Q1

REPORT INFORMATION
  Report Type: 
  Country: None (occurrence: None)
  Receive Date: 20040329
  Receipt Date: 20040318
  Transmission Date: 20041129
  Serious: Yes (Hospitalization)
  Sender: FDA-Public Use
  Company Number: HQWYE898126SEP03

PATIENT
  Age: 73 Year
  Sex: Female

DRUGS (6)
  1. INIPOMP (PANTOPRAZOLE, TABLET, DELAYED RELEASE) [Suspect]
     Indication: DIABETES MELLITUS NON-INSULIN-DEPENDENT
     Dosage: ORAL
     Route: 048
     Dates: start: 20030101, end: 20030817
  2. GLYBURIDE [Suspect]
     Indication: DIABETES MELLITUS NON-INSULIN-DEPENDENT
     Dosage: 5 MG 3X PER 1 DAY; ORAL
     Route: 048
     Dates: end: 20030817
  3. GLUCOPHAGE [Suspect]
     Indication: DIABETES MELLITUS NON-INSULIN-DEPENDENT
     Dosage: 500 MG , ORAL
     Route: 048
     Dates: end: 20030817
  4. RAMIPRIL [Concomitant]
  5. FOLIC ACID [Concomitant]
  6. ACETAMINOPHEN [Concomitant]

REACTIONS (9)
  - ANOREXIA [None]
  - ANTINUCLEAR ANTIBODY POSITIVE [None]
  - ASPIRATION BONE MARROW ABNORMAL [None]
  - CONDITION AGGRAVATED [None]
  - HAEMOLYSIS [None]
  - HAPTOGLOBIN DECREASED [None]
  - NORMOCHROMIC NORMOCYTIC ANAEMIA [None]
  - VITAMIN B12 DEFICIENCY [None]
  - WEIGHT DECREASED [None]
